FAERS Safety Report 4705395-7 (Version None)
Quarter: 2005Q3

REPORT INFORMATION
  Report Type: 
  Country: None (occurrence: None)
  Receive Date: 20050701
  Receipt Date: 20050629
  Transmission Date: 20060218
  Serious: Yes (Other)
  Sender: FDA-Public Use
  Company Number: US-GLAXOSMITHKLINE-A0564614A

PATIENT
  Age: 8 Year
  Sex: Male

DRUGS (2)
  1. ZANTAC [Suspect]
     Route: 048
  2. MULTI-VITAMIN [Concomitant]

REACTIONS (6)
  - FULL BLOOD COUNT ABNORMAL [None]
  - LEUKOPENIA [None]
  - LYMPHOPENIA [None]
  - MACROCYTOSIS [None]
  - MEAN CELL VOLUME INCREASED [None]
  - NEUTROPENIA [None]
